FAERS Safety Report 5527792-2 (Version None)
Quarter: 2007Q4

REPORT INFORMATION
  Report Type: 
  Country: None (occurrence: None)
  Receive Date: 20071128
  Receipt Date: 20071122
  Transmission Date: 20080405
  Serious: Yes (Death, Hospitalization)
  Sender: FDA-Public Use
  Company Number: PHHO2007JP18275

PATIENT
  Age: 86 Year
  Sex: Female
  Weight: 60 kg

DRUGS (4)
  1. DIOVAN [Suspect]
     Indication: HYPERTENSION
     Dosage: 80 MG, QD
     Route: 048
     Dates: start: 20061119
  2. NORVASC [Concomitant]
     Dosage: 2.5 MG
     Route: 048
  3. TRICHLORMETHIAZIDE [Concomitant]
     Dosage: 1 MG
     Route: 048
     Dates: start: 20061127
  4. ATELEC [Concomitant]
     Dosage: 10 MG, 5 MG
     Dates: start: 20061128

REACTIONS (3)
  - C-REACTIVE PROTEIN INCREASED [None]
  - CHEST PAIN [None]
  - PNEUMONIA [None]
